FAERS Safety Report 14018289 (Version 2)
Quarter: 2017Q4

REPORT INFORMATION
  Report Type: Report from Study
  Country: US (occurrence: US)
  Receive Date: 20170928
  Receipt Date: 20171005
  Transmission Date: 20180321
  Serious: Yes (Other)
  Sender: FDA-Public Use
  Company Number: US-AMGEN-USASL2017144548

PATIENT
  Sex: Male

DRUGS (1)
  1. ENBREL [Suspect]
     Active Substance: ETANERCEPT
     Indication: ANKYLOSING SPONDYLITIS
     Dosage: UNK
     Route: 065
     Dates: start: 2014, end: 2016

REACTIONS (6)
  - Fibromyalgia [Unknown]
  - Drug effect incomplete [Unknown]
  - Hypoacusis [Unknown]
  - Road traffic accident [Unknown]
  - Ankylosing spondylitis [Unknown]
  - Visual impairment [Unknown]
